FAERS Safety Report 5402483-7 (Version None)
Quarter: 2007Q3

REPORT INFORMATION
  Report Type: 
  Country: None (occurrence: None)
  Receive Date: 20070801
  Receipt Date: 20060713
  Transmission Date: 20080115
  Serious: No
  Sender: FDA-Public Use
  Company Number: A0612200A

PATIENT
  Sex: Female

DRUGS (2)
  1. IMITREX [Suspect]
     Indication: MIGRAINE
     Route: 048
  2. IMITREX [Suspect]
     Route: 058

REACTIONS (2)
  - MENOPAUSE [None]
  - MOOD ALTERED [None]
